FAERS Safety Report 8521922-6 (Version None)
Quarter: 2012Q3

REPORT INFORMATION
  Report Type: 
  Country: None (occurrence: None)
  Receive Date: 20120719
  Receipt Date: 20120529
  Transmission Date: 20120928
  Serious: No
  Sender: FDA-Public Use
  Company Number: US-BRISTOL-MYERS SQUIBB COMPANY-16641326

PATIENT
  Age: 45 Year
  Sex: Female

DRUGS (1)
  1. YERVOY [Suspect]
     Indication: METASTATIC MALIGNANT MELANOMA
     Dosage: THERAPY DATES:26JAN12,16FEB12,8MAR12,29MAR12
     Dates: start: 20120126

REACTIONS (7)
  - OEDEMA [None]
  - BLOOD THYROID STIMULATING HORMONE DECREASED [None]
  - HEADACHE [None]
  - ERYTHEMA [None]
  - PYREXIA [None]
  - VISUAL IMPAIRMENT [None]
  - NIGHT SWEATS [None]
